FAERS Safety Report 25871749 (Version 1)
Quarter: 2025Q4

REPORT INFORMATION
  Report Type: Spontaneous
  Country: US (occurrence: US)
  Receive Date: 20251001
  Receipt Date: 20251001
  Transmission Date: 20260118
  Serious: No
  Sender: RECKITT BENCKISER
  Company Number: US-Indivior Limited-INDV-166679-2025

PATIENT
  Age: 41 Year
  Sex: Male

DRUGS (2)
  1. SUBLOCADE [Suspect]
     Active Substance: BUPRENORPHINE
     Indication: Drug dependence
     Dosage: 100 MILLIGRAM, Q2MO
     Route: 065
     Dates: start: 20250507
  2. SUBLOCADE [Suspect]
     Active Substance: BUPRENORPHINE
     Dosage: 100 MILLIGRAM, UNKNOWN
     Route: 065
     Dates: start: 20250702

REACTIONS (6)
  - Drug screen negative [Unknown]
  - Incorrect route of product administration [Recovered/Resolved]
  - Inappropriate schedule of product administration [Unknown]
  - Injection site pain [Unknown]
  - Injection site discharge [Recovered/Resolved]
  - Injection site ulcer [Unknown]

NARRATIVE: CASE EVENT DATE: 20250101
